FAERS Safety Report 9969368 (Version 2)
Quarter: 2014Q1

REPORT INFORMATION
  Report Type: Spontaneous
  Country: US (occurrence: US)
  Receive Date: 20140306
  Receipt Date: 20140325
  Transmission Date: 20141002
  Serious: Yes (Death, Hospitalization)
  Sender: FDA-Public Use
  Company Number: US-AMGEN-USASP2014014697

PATIENT
  Age: 81 Year
  Sex: Male
  Weight: 100.23 kg

DRUGS (1)
  1. PROLIA [Suspect]
     Indication: SENILE OSTEOPOROSIS
     Dosage: 60 MG/ML, Q6MO
     Route: 065
     Dates: start: 20130924

REACTIONS (2)
  - Cerebral haemorrhage [Fatal]
  - Cerebrovascular disorder [Fatal]
